FAERS Safety Report 18344469 (Version 1)
Quarter: 2020Q4

REPORT INFORMATION
  Report Type: Spontaneous
  Country: US (occurrence: US)
  Receive Date: 20201001
  Receipt Date: 20201001
  Transmission Date: 20210114
  Serious: Yes (Death, Hospitalization)
  Sender: FDA-Public Use
  Company Number: None

PATIENT
  Age: 79 Year
  Sex: Male
  Weight: 72.57 kg

DRUGS (4)
  1. PADCEV [Suspect]
     Active Substance: ENFORTUMAB VEDOTIN-EJFV
  2. TROUJEO [Concomitant]
  3. LISINOPRIL. [Concomitant]
     Active Substance: LISINOPRIL
  4. OZEMPIC [Concomitant]
     Active Substance: SEMAGLUTIDE

REACTIONS (16)
  - Ageusia [None]
  - Pain [None]
  - Choking [None]
  - Alopecia [None]
  - Urinary tract infection [None]
  - Decreased appetite [None]
  - Fall [None]
  - Secretion discharge [None]
  - Vision blurred [None]
  - Infection [None]
  - Hyperglycaemia [None]
  - Dysphagia [None]
  - Oesophagitis [None]
  - Febrile neutropenia [None]
  - Fatigue [None]
  - Rash [None]

NARRATIVE: CASE EVENT DATE: 20200910
